FAERS Safety Report 10699444 (Version 1)
Quarter: 2015Q1

REPORT INFORMATION
  Report Type: Spontaneous
  Country: CA (occurrence: CA)
  Receive Date: 20150109
  Receipt Date: 20150109
  Transmission Date: 20150721
  Serious: Yes (Other)
  Sender: FDA-Public Use
  Company Number: CA-ROCHE-1518287

PATIENT
  Sex: Male

DRUGS (1)
  1. NAPROXEN. [Suspect]
     Active Substance: NAPROXEN
     Indication: TOOTH DISORDER
     Route: 065

REACTIONS (4)
  - Foreign body [Unknown]
  - Choking [Unknown]
  - Product quality issue [Unknown]
  - Respiratory arrest [Unknown]
